FAERS Safety Report 18617030 (Version 1)
Quarter: 2020Q4

REPORT INFORMATION
  Report Type: Report from Study
  Country: IT (occurrence: IT)
  Receive Date: 20201215
  Receipt Date: 20201215
  Transmission Date: 20210114
  Serious: Yes (Hospitalization)
  Sender: FDA-Public Use
  Company Number: IT-TEVA-2020-IT-1857377

PATIENT
  Age: 82 Year
  Sex: Female

DRUGS (11)
  1. ATORVASTATIN [Concomitant]
     Active Substance: ATORVASTATIN
  2. RAMIPRIL. [Concomitant]
     Active Substance: RAMIPRIL
     Dosage: 2.5MG
  3. CLOPIDOGREL [Suspect]
     Active Substance: CLOPIDOGREL BISULFATE
     Route: 065
     Dates: start: 20200101, end: 20200829
  4. LASIX [Concomitant]
     Active Substance: FUROSEMIDE
     Dosage: 75MG
  5. GLYCERYL TRINITRATE [Concomitant]
     Active Substance: NITROGLYCERIN
     Dosage: 15MCG
  6. CARDIOASPIRIN [Suspect]
     Active Substance: ASPIRIN
     Dates: start: 20200101, end: 20200829
  7. PANTOPRAZOLE [Concomitant]
     Active Substance: PANTOPRAZOLE
     Dosage: 40MG
  8. DELTACORTENE [Concomitant]
     Active Substance: PREDNISONE
  9. CANRENONE [Concomitant]
     Active Substance: CANRENONE
     Dosage: 50MG
  10. ELIQUIS [Suspect]
     Active Substance: APIXABAN
     Dosage: 1 DF
     Route: 048
     Dates: start: 20200101, end: 20200829
  11. BISOPROLOL HEMIFUMARATE [Concomitant]
     Active Substance: BISOPROLOL FUMARATE
     Dosage: 2.5MG

REACTIONS (2)
  - Anaemia [Recovering/Resolving]
  - Haemoglobin decreased [Recovering/Resolving]

NARRATIVE: CASE EVENT DATE: 20200829
